FAERS Safety Report 21949853 (Version 1)
Quarter: 2023Q1

REPORT INFORMATION
  Report Type: Report from Study
  Country: KR (occurrence: KR)
  Receive Date: 20230203
  Receipt Date: 20230203
  Transmission Date: 20230417
  Serious: Yes (Other)
  Sender: FDA-Public Use
  Company Number: KR-GLAXOSMITHKLINE-KR2021GSK250370

PATIENT

DRUGS (26)
  1. BELIMUMAB [Suspect]
     Active Substance: BELIMUMAB
     Indication: Systemic lupus erythematosus
     Dosage: 640 MG
     Route: 042
     Dates: start: 20210825
  2. BELIMUMAB [Suspect]
     Active Substance: BELIMUMAB
     Dosage: 640 MG
     Route: 042
     Dates: start: 20210908
  3. BELIMUMAB [Suspect]
     Active Substance: BELIMUMAB
     Dosage: 640 MG
     Route: 042
     Dates: start: 20210923
  4. BELIMUMAB [Suspect]
     Active Substance: BELIMUMAB
     Dosage: 640 MG
     Route: 042
     Dates: start: 20211020
  5. BELIMUMAB [Suspect]
     Active Substance: BELIMUMAB
     Dosage: 640 MG
     Route: 042
     Dates: start: 20211118
  6. BELIMUMAB [Suspect]
     Active Substance: BELIMUMAB
     Dosage: UNK MG
     Route: 042
     Dates: start: 20220126
  7. MYCOPHENOLATE MOFETIL [Concomitant]
     Active Substance: MYCOPHENOLATE MOFETIL
     Dosage: 1 MG, BID
     Route: 048
     Dates: start: 20210825
  8. PREDNISOLONE [Concomitant]
     Active Substance: PREDNISOLONE
     Indication: Arthralgia
     Dosage: 5 MG, BID
     Route: 048
     Dates: start: 20210825
  9. BENZYDAMINE HYDROCHLORIDE [Concomitant]
     Active Substance: BENZYDAMINE HYDROCHLORIDE
     Indication: Prophylaxis against gastrointestinal ulcer
     Dosage: UNK
     Route: 048
     Dates: start: 20210908
  10. NYSTATIN [Concomitant]
     Active Substance: NYSTATIN
     Indication: Prophylaxis against gastrointestinal ulcer
     Dosage: 100 KIU/ML
     Route: 048
     Dates: start: 20210908
  11. RISENEX M [Concomitant]
     Indication: Mineral supplementation
     Dosage: 1 DF, 0.1
     Route: 048
     Dates: start: 20190701
  12. FOLIC ACID [Concomitant]
     Active Substance: FOLIC ACID
     Indication: Iron deficiency
     Dosage: 1 MG, QD
     Route: 048
     Dates: start: 20210105
  13. LOSARTAN POTASSIUM [Concomitant]
     Active Substance: LOSARTAN POTASSIUM
     Indication: Hypertension
     Dosage: 50 MG, QD
     Route: 048
     Dates: start: 20210825
  14. ATORVASTATIN [Concomitant]
     Active Substance: ATORVASTATIN
     Indication: Metabolic disorder prophylaxis
     Dosage: 40 MG, QD
     Route: 048
     Dates: start: 20210825, end: 20210908
  15. BERAPROST SODIUM [Concomitant]
     Active Substance: BERAPROST SODIUM
     Indication: Blood disorder prophylaxis
     Dosage: 2 BID
     Route: 048
     Dates: start: 20210825
  16. SITRACAL-F (CALCIUM CITRATE/CHOLECALCIFEROL) [Concomitant]
     Indication: Mineral supplementation
     Dosage: 1 DF, BID
     Route: 048
     Dates: start: 20180123
  17. ATORVASTATIN [Concomitant]
     Active Substance: ATORVASTATIN
     Indication: Hyperlipidaemia
     Dosage: 20 MG, QD
     Route: 048
     Dates: start: 20211118
  18. PREDNISOLONE [Concomitant]
     Active Substance: PREDNISOLONE
     Indication: Product used for unknown indication
     Dosage: 5 MG, BID
     Route: 048
     Dates: start: 20210825, end: 20211117
  19. PREDNISOLONE [Concomitant]
     Active Substance: PREDNISOLONE
     Dosage: 5 MG, QD
     Route: 048
     Dates: start: 20211118, end: 20220125
  20. ARONAMIN C PLUS [Concomitant]
     Indication: Vitamin C deficiency
     Dosage: 1 DF, BID
     Dates: start: 20210311
  21. MYCOPHENOLATE MOFETIL [Concomitant]
     Active Substance: MYCOPHENOLATE MOFETIL
     Indication: Product used for unknown indication
     Dosage: 1000 MG, BID
     Route: 048
     Dates: start: 20210923
  22. CELLCEPT [Concomitant]
     Active Substance: MYCOPHENOLATE MOFETIL
     Indication: Product used for unknown indication
     Dosage: 1000 MG, BID
     Route: 048
     Dates: start: 20210825, end: 20210922
  23. BENZYDAMINE HYDROCHLORIDE [Concomitant]
     Active Substance: BENZYDAMINE HYDROCHLORIDE
     Indication: Mouth ulceration
     Dosage: 15 ML, TID
     Route: 048
     Dates: start: 20210908, end: 202109
  24. COZAAR [Concomitant]
     Active Substance: LOSARTAN POTASSIUM
     Indication: Hypertension
     Dosage: 50 MG, QD
     Route: 048
     Dates: start: 20180612
  25. LIPITOR [Concomitant]
     Active Substance: ATORVASTATIN CALCIUM
     Indication: Metabolic disorder prophylaxis
     Dosage: 40 MG, QD
     Route: 048
     Dates: start: 20180529, end: 20210907
  26. BERAPROST [Concomitant]
     Active Substance: BERAPROST
     Indication: Blood disorder prophylaxis
     Dosage: 40 UG, BID
     Route: 048
     Dates: start: 20180123, end: 20220125

REACTIONS (1)
  - Insomnia [Recovered/Resolved]

NARRATIVE: CASE EVENT DATE: 20211101
